FAERS Safety Report 24992250 (Version 1)
Quarter: 2025Q1

REPORT INFORMATION
  Report Type: Spontaneous
  Country: IT (occurrence: IT)
  Receive Date: 20250220
  Receipt Date: 20250220
  Transmission Date: 20250408
  Serious: Yes (Hospitalization, Other)
  Sender: GILEAD
  Company Number: IT-GILEAD-2025-0704150

PATIENT
  Age: 64 Year
  Sex: Male

DRUGS (1)
  1. YESCARTA [Suspect]
     Active Substance: AXICABTAGENE CILOLEUCEL
     Indication: Diffuse large B-cell lymphoma refractory
     Route: 042
     Dates: start: 20240115, end: 20240115

REACTIONS (4)
  - Cytokine release syndrome [Recovered/Resolved]
  - Acute coronary syndrome [Unknown]
  - Salivary gland enlargement [Recovered/Resolved]
  - Localised oedema [Recovered/Resolved]

NARRATIVE: CASE EVENT DATE: 20240115
